FAERS Safety Report 7337542-5 (Version None)
Quarter: 2011Q1

REPORT INFORMATION
  Report Type: 
  Country: None (occurrence: None)
  Receive Date: 20110308
  Receipt Date: 20100723
  Transmission Date: 20110831
  Serious: Yes (Death, Other)
  Sender: FDA-Public Use
  Company Number: US-BAYER-201029263NA

PATIENT
  Sex: Male
  Weight: 74.83 kg

DRUGS (13)
  1. TRASYLOL [Suspect]
     Indication: CARDIAC OPERATION
     Dosage: 1 ML, ONCE
     Dates: start: 19971205, end: 19971205
  2. NITROGLYCERIN [Concomitant]
     Dosage: 0.2 MG, UNK
     Route: 061
  3. HEPARIN [Concomitant]
     Dosage: UNK
     Route: 042
     Dates: start: 19971205
  4. DOBUTREX [Concomitant]
     Dosage: UNK
     Dates: start: 19971205
  5. NEO-SYNEPHRINOL [Concomitant]
     Dosage: UNK
     Dates: start: 19971205
  6. PLASMA [Concomitant]
     Dosage: UNK
     Dates: start: 19971205
  7. DOPAMINE [Concomitant]
     Dosage: UNK
     Dates: start: 19971205
  8. ACETYLSALICYLIC ACID (} 100 MG, FAST RELEASE) [Concomitant]
     Route: 048
  9. MANNITOL [Concomitant]
     Dosage: 25 G, UNK
     Route: 042
     Dates: start: 19971205
  10. ZOCOR [Concomitant]
     Dosage: UNK
     Route: 048
  11. SODIUM BICARBONATE [Concomitant]
     Dosage: 5 MG, UNK
     Route: 042
     Dates: start: 19971205
  12. PROTAMINE SULFATE [Concomitant]
     Dosage: UNK
     Dates: start: 19971205
  13. PLATELETS [Concomitant]
     Dosage: UNK
     Dates: start: 19971205

REACTIONS (9)
  - CEREBROVASCULAR ACCIDENT [None]
  - STRESS [None]
  - UNEVALUABLE EVENT [None]
  - FEAR [None]
  - DEATH [None]
  - PAIN [None]
  - INJURY [None]
  - ANXIETY [None]
  - EMOTIONAL DISTRESS [None]
